FAERS Safety Report 4557966-9 (Version None)
Quarter: 2005Q1

REPORT INFORMATION
  Report Type: 
  Country: None (occurrence: None)
  Receive Date: 20050121
  Receipt Date: 20040318
  Transmission Date: 20050727
  Serious: No
  Sender: FDA-Public Use
  Company Number: US-BRISTOL-MYERS SQUIBB COMPANY-12536793

PATIENT
  Age: 39 Year
  Sex: Female
  Weight: 67 kg

DRUGS (4)
  1. SERZONE [Suspect]
     Route: 048
     Dates: start: 20020801
  2. LEXAPRO [Concomitant]
     Dosage: 10 TO 20 MG DAILY
  3. LAMICTAL [Concomitant]
  4. KLONOPIN [Concomitant]
     Dosage: .05 TO 1 MG DAILY

REACTIONS (5)
  - ANOREXIA [None]
  - DEPRESSION [None]
  - LETHARGY [None]
  - SUICIDAL IDEATION [None]
  - TREMOR [None]
